FAERS Safety Report 20763698 (Version 3)
Quarter: 2022Q2

REPORT INFORMATION
  Report Type: Spontaneous
  Country: US (occurrence: US)
  Receive Date: 20220428
  Receipt Date: 20220518
  Transmission Date: 20220720
  Serious: Yes (Other)
  Sender: FDA-Public Use
  Company Number: US-LUNDBECK-DKLU3047097

PATIENT
  Age: 44 Year
  Sex: Male

DRUGS (3)
  1. VYEPTI [Suspect]
     Active Substance: EPTINEZUMAB-JJMR
     Indication: Migraine
     Route: 041
     Dates: start: 20211008
  2. VYEPTI [Suspect]
     Active Substance: EPTINEZUMAB-JJMR
     Route: 041
  3. VYEPTI [Suspect]
     Active Substance: EPTINEZUMAB-JJMR
     Route: 041
     Dates: start: 20210415

REACTIONS (6)
  - Mental impairment [Unknown]
  - Migraine [Not Recovered/Not Resolved]
  - Headache [Recovering/Resolving]
  - Rash [Unknown]
  - Pruritus [Recovering/Resolving]
  - Pain [Not Recovered/Not Resolved]

NARRATIVE: CASE EVENT DATE: 20220417
